FAERS Safety Report 6717985-0 (Version None)
Quarter: 2010Q2

REPORT INFORMATION
  Report Type: 
  Country: None (occurrence: None)
  Receive Date: 20100510
  Receipt Date: 20100505
  Transmission Date: 20101027
  Serious: Yes (Death, Other)
  Sender: FDA-Public Use
  Company Number: PHHY2010MX29050

PATIENT
  Age: 51 Year
  Sex: Male

DRUGS (1)
  1. ZOMETA [Suspect]
     Dosage: 4 MG, QMO
     Route: 042

REACTIONS (3)
  - FLUID RETENTION [None]
  - GASTROINTESTINAL DISORDER [None]
  - RENAL FAILURE [None]
